FAERS Safety Report 8302183 (Version 2)
Quarter: 2013Q2

REPORT INFORMATION
  Report Type: Spontaneous
  Country: US (occurrence: None)
  Receive Date: 20111007
  Receipt Date: 20120508
  Transmission Date: 20140414
  Serious: Yes (Other)
  Sender: FDA-Public Use
  Company Number: 2011HGS-002409

PATIENT
  Age: 27 Year
  Sex: Female
  Weight: 54.89 kg

DRUGS (7)
  1. BENLYSTA [Suspect]
     Indication: SYSTEMIC LUPUS ERYTHEMATOSUS
     Route: 041
     Dates: start: 20110615
  2. CELLCEPT (MYCOPHENOLATE MOFETIL) (MYCOPHENOLATE MOFETIL) [Concomitant]
  3. PLAQUENIL (HYDROCHLOROQUINE SULFATE) (HYDROCHLOROQUINE SULFATE) [Concomitant]
  4. PREDNISONE (PREDNISONE) (PREDNISONE) [Concomitant]
  5. LISINOPRIL (LISINOPRIL) (LISINOPRIL) [Concomitant]
  6. VICODIN (VICODIN) (PARACETAMOL, HYDROCODONE BITARTRATE) [Concomitant]
  7. IRON (IRON) (IRON) [Concomitant]

REACTIONS (5)
  - NERVE INJURY [None]
  - PROCTALGIA [None]
  - CONSTIPATION [None]
  - URINARY RETENTION [None]
  - URINARY TRACT INFECTION [None]
